FAERS Safety Report 23643237 (Version 1)
Quarter: 2024Q1

REPORT INFORMATION
  Report Type: Spontaneous
  Country: US (occurrence: None)
  Receive Date: 20240315
  Receipt Date: 20240315
  Transmission Date: 20240410
  Serious: No
  Sender: FDA-Public Use
  Company Number: None

PATIENT

DRUGS (1)
  1. CAPECITABINE [Suspect]
     Active Substance: CAPECITABINE

REACTIONS (5)
  - Eye irritation [None]
  - Conjunctivitis [None]
  - Fatigue [None]
  - Gastrointestinal disorder [None]
  - Skin fissures [None]
